APPROVED DRUG PRODUCT: DOXERCALCIFEROL
Active Ingredient: DOXERCALCIFEROL
Strength: 2MCG/ML (2MCG/ML)
Dosage Form/Route: INJECTABLE;INJECTION
Application: A203929 | Product #002
Applicant: EPIC PHARMA LLC
Approved: Mar 28, 2016 | RLD: No | RS: No | Type: DISCN